FAERS Safety Report 25996731 (Version 1)
Quarter: 2025Q4

REPORT INFORMATION
  Report Type: Spontaneous
  Country: US (occurrence: None)
  Receive Date: 20251104
  Receipt Date: 20251104
  Transmission Date: 20260117
  Serious: Yes (Other)
  Sender: FDA-CTU
  Company Number: None

PATIENT
  Age: 83 Year
  Sex: Male

DRUGS (2)
  1. YUPELRI [Suspect]
     Active Substance: REVEFENACIN
     Indication: Chronic obstructive pulmonary disease
     Dosage: FREQUENCY : DAILY;?
     Route: 055
     Dates: start: 20250527
  2. budesonide 0.5mg [Concomitant]
     Dates: start: 20250527

REACTIONS (2)
  - Pemphigoid [None]
  - Drug eruption [None]

NARRATIVE: CASE EVENT DATE: 20250528
